FAERS Safety Report 5217708-0 (Version None)
Quarter: 2007Q1

REPORT INFORMATION
  Report Type: 
  Country: None (occurrence: None)
  Receive Date: 20061130
  Receipt Date: 20060316
  Transmission Date: 20070707
  Serious: Yes (Other)
  Sender: FDA-Public Use
  Company Number: US200601002143

PATIENT
  Age: 22 Year
  Sex: Female
  Weight: 132.4 kg

DRUGS (7)
  1. ZYPREXA [Suspect]
     Indication: SCHIZOPHRENIA
     Dosage: 15 MG, ORAL
     Route: 048
     Dates: start: 20000101
  2. TRAZODONE HCL [Concomitant]
  3. SERTRALINE [Concomitant]
  4. VALPROIC ACID [Concomitant]
  5. RISPERIDONE [Concomitant]
  6. QUETIAPINE FUMARATE [Concomitant]
  7. HYDROCODONE BITARTRATE [Concomitant]

REACTIONS (2)
  - DIABETES MELLITUS NON-INSULIN-DEPENDENT [None]
  - WEIGHT INCREASED [None]
